FAERS Safety Report 6283064-2 (Version None)
Quarter: 2009Q3

REPORT INFORMATION
  Report Type: 
  Country: None (occurrence: None)
  Receive Date: 20090724
  Receipt Date: 20090714
  Transmission Date: 20100115
  Serious: Yes (Other)
  Sender: FDA-Public Use
  Company Number: US-PFIZER INC-2009241281

PATIENT
  Sex: Male
  Weight: 70.295 kg

DRUGS (5)
  1. LYRICA [Suspect]
     Indication: NEURALGIA
     Dosage: 150 MG, 3X/DAY
     Dates: start: 20060101
  2. NEURONTIN [Suspect]
     Indication: NEURALGIA
  3. MARIJUANA [Suspect]
  4. HYDROCODONE [Concomitant]
     Dosage: UNK
  5. BACLOFEN [Concomitant]
     Dosage: UNK

REACTIONS (1)
  - CONVULSION [None]
